FAERS Safety Report 6380284-3 (Version None)
Quarter: 2009Q3

REPORT INFORMATION
  Report Type: 
  Country: None (occurrence: None)
  Receive Date: 20090923
  Receipt Date: 20090910
  Transmission Date: 20100115
  Serious: Yes (Other)
  Sender: FDA-Public Use
  Company Number: 2009AL005997

PATIENT
  Age: 84 Year
  Sex: Male

DRUGS (9)
  1. AMLODIPINE BESYLATE [Suspect]
     Indication: ANGINA PECTORIS
     Dosage: 5 MG; QD
     Dates: start: 20090417
  2. RANOLAZINE HYDROCHLORIDE [Concomitant]
  3. .. [Concomitant]
  4. ACETYLSALICYLIC ACID [Concomitant]
  5. CLOPIDOGREL [Concomitant]
  6. ATORVASTATIN [Concomitant]
  7. BISOPROLOL [Concomitant]
  8. ISOSORBIDE DINITRATE [Concomitant]
  9. PERINDOPRIL [Concomitant]

REACTIONS (2)
  - NEUROPATHY PERIPHERAL [None]
  - PAIN IN EXTREMITY [None]
